FAERS Safety Report 9415426 (Version 3)
Quarter: 2013Q3

REPORT INFORMATION
  Report Type: Report from Study
  Country: DE (occurrence: DE)
  Receive Date: 20130723
  Receipt Date: 20130904
  Transmission Date: 20140515
  Serious: Yes (Hospitalization)
  Sender: FDA-Public Use
  Company Number: DE-AMGEN-DEUCT2013051471

PATIENT
  Age: 52 Year
  Sex: Male

DRUGS (1)
  1. PANITUMUMAB [Suspect]
     Indication: RECTAL CANCER
     Dosage: 4.8 MG/KG, UNK
     Route: 065
     Dates: start: 20120711

REACTIONS (2)
  - Abdominal wound dehiscence [Recovered/Resolved]
  - Hypotonia [Recovered/Resolved]
